FAERS Safety Report 7113421-3 (Version None)
Quarter: 2010Q4

REPORT INFORMATION
  Report Type: 
  Country: None (occurrence: None)
  Receive Date: 20101119
  Receipt Date: 20100928
  Transmission Date: 20110411
  Serious: No
  Sender: FDA-Public Use
  Company Number: A0885362A

PATIENT

DRUGS (2)
  1. ARZERRA [Suspect]
     Dosage: 2000MG UNKNOWN
     Route: 042
  2. UNKNOWN [Concomitant]

REACTIONS (3)
  - DRUG ADMINISTRATION ERROR [None]
  - PRODUCT QUALITY ISSUE [None]
  - WRONG TECHNIQUE IN DRUG USAGE PROCESS [None]
